FAERS Safety Report 9769582 (Version 1)
Quarter: 2013Q4

REPORT INFORMATION
  Report Type: Spontaneous
  Country: FR (occurrence: FR)
  Receive Date: 20131218
  Receipt Date: 20131218
  Transmission Date: 20140711
  Serious: Yes (Life-Threatening, Hospitalization)
  Sender: FDA-Public Use
  Company Number: FR-SA-2013SA128677

PATIENT
  Age: 62 Year
  Sex: Female

DRUGS (10)
  1. LOVENOX [Suspect]
     Indication: PORTAL VEIN THROMBOSIS
     Route: 058
     Dates: start: 20130928, end: 20130930
  2. TAZOCILLINE [Concomitant]
  3. ZYVOXID [Concomitant]
  4. ACETYLCYSTEINE [Concomitant]
  5. NORADRENALINE [Concomitant]
  6. HYPNOVEL [Concomitant]
  7. SUFENTANIL [Concomitant]
  8. NIMBEX [Concomitant]
  9. NEORAL [Concomitant]
  10. PREVISCAN [Concomitant]
     Dates: end: 20130928

REACTIONS (2)
  - Multi-organ failure [Recovered/Resolved]
  - Shock haemorrhagic [Recovered/Resolved]
